FAERS Safety Report 21143229 (Version 1)
Quarter: 2022Q3

REPORT INFORMATION
  Report Type: Spontaneous
  Country: US (occurrence: US)
  Receive Date: 20220728
  Receipt Date: 20220728
  Transmission Date: 20221027
  Serious: Yes (Hospitalization)
  Sender: FDA-Public Use
  Company Number: US-TEVA-2022-US-2057816

PATIENT
  Age: 78 Year
  Sex: Male

DRUGS (5)
  1. METHYLPREDNISOLONE [Suspect]
     Active Substance: METHYLPREDNISOLONE
     Indication: COVID-19
     Dosage: 80 MILLIGRAM DAILY;
     Route: 042
     Dates: start: 2020
  2. REMDESIVIR [Concomitant]
     Active Substance: REMDESIVIR
     Indication: COVID-19
     Dosage: 200 MILLIGRAM DAILY;
     Route: 042
     Dates: start: 2020
  3. REMDESIVIR [Concomitant]
     Active Substance: REMDESIVIR
     Dosage: 100 MILLIGRAM DAILY;
     Route: 042
  4. Sialidase [Concomitant]
     Indication: Parainfluenzae virus infection
     Route: 065
  5. Sialidase [Concomitant]
     Indication: Lower respiratory tract infection

REACTIONS (2)
  - Fungal infection [Unknown]
  - Off label use [Unknown]

NARRATIVE: CASE EVENT DATE: 20200101
